FAERS Safety Report 21069053 (Version 1)
Quarter: 2022Q3

REPORT INFORMATION
  Report Type: Spontaneous
  Country: US (occurrence: US)
  Receive Date: 20220712
  Receipt Date: 20220712
  Transmission Date: 20221026
  Serious: Yes (Hospitalization)
  Sender: FDA-Public Use
  Company Number: US-TERSERA THERAPEUTICS LLC-2022TRS002870

PATIENT

DRUGS (15)
  1. ZICONOTIDE [Suspect]
     Active Substance: ZICONOTIDE
     Indication: Back pain
     Dosage: UNK
     Route: 037
  2. ZICONOTIDE [Suspect]
     Active Substance: ZICONOTIDE
     Dosage: DOSE DECREASED
     Route: 037
  3. ZICONOTIDE [Suspect]
     Active Substance: ZICONOTIDE
     Dosage: DOSE INCREASED
     Route: 037
  4. FENTANYL [Suspect]
     Active Substance: FENTANYL
     Indication: Back pain
     Dosage: UNK
     Route: 037
  5. FENTANYL [Suspect]
     Active Substance: FENTANYL
     Dosage: DOSE DECREASED
     Route: 037
  6. FENTANYL [Suspect]
     Active Substance: FENTANYL
     Dosage: DOSE INCREASED
     Route: 037
  7. BACLOFEN [Suspect]
     Active Substance: BACLOFEN
     Indication: Back pain
     Dosage: UNK
     Route: 037
  8. BACLOFEN [Suspect]
     Active Substance: BACLOFEN
     Dosage: DOSE DECREASED
     Route: 037
  9. BACLOFEN [Suspect]
     Active Substance: BACLOFEN
     Dosage: DOSE INCREASED
     Route: 037
  10. PREGABALIN [Concomitant]
     Active Substance: PREGABALIN
     Indication: Product used for unknown indication
     Dosage: UNK
     Route: 065
  11. MIRTAZAPINE [Concomitant]
     Active Substance: MIRTAZAPINE
     Indication: Product used for unknown indication
     Dosage: UNK
     Route: 065
  12. DULOXETINE [Concomitant]
     Active Substance: DULOXETINE
     Indication: Product used for unknown indication
     Dosage: UNK
     Route: 065
  13. AMITRIPTYLINE [Concomitant]
     Active Substance: AMITRIPTYLINE
     Indication: Product used for unknown indication
     Dosage: UNK
     Route: 065
  14. BACLOFEN [Concomitant]
     Active Substance: BACLOFEN
     Indication: Product used for unknown indication
     Dosage: 10 MG, TID
     Route: 048
  15. BACLOFEN [Concomitant]
     Active Substance: BACLOFEN
     Dosage: 15 MG, TID
     Route: 048

REACTIONS (5)
  - Mydriasis [Unknown]
  - Mental status changes [Recovered/Resolved]
  - Tremor [Unknown]
  - Toxicity to various agents [Unknown]
  - Off label use [Unknown]
